FAERS Safety Report 7801354-6 (Version None)
Quarter: 2011Q4

REPORT INFORMATION
  Report Type: 
  Country: None (occurrence: None)
  Receive Date: 20111007
  Receipt Date: 20111004
  Transmission Date: 20120403
  Serious: No
  Sender: FDA-Public Use
  Company Number: US-PFIZER INC-2011118069

PATIENT
  Sex: Male
  Weight: 92.971 kg

DRUGS (1)
  1. IBUPROFEN (ADVIL) [Suspect]
     Indication: MUSCULOSKELETAL DISCOMFORT
     Dosage: 600 MG, WEEKLY
     Route: 048
     Dates: start: 20100801, end: 20110501

REACTIONS (1)
  - DRUG INEFFECTIVE [None]
